FAERS Safety Report 24445357 (Version 2)
Quarter: 2024Q4

REPORT INFORMATION
  Report Type: Spontaneous
  Country: FR (occurrence: FR)
  Receive Date: 20241016
  Receipt Date: 20241024
  Transmission Date: 20250114
  Serious: Yes (Hospitalization, Other)
  Sender: SANOFI AVENTIS
  Company Number: FR-SANOFI-02247106

PATIENT
  Age: 44 Year
  Sex: Male

DRUGS (2)
  1. DUPIXENT [Suspect]
     Active Substance: DUPILUMAB
     Indication: Asthma
     Dosage: UNK
     Dates: start: 2021
  2. OMALIZUMAB [Concomitant]
     Active Substance: OMALIZUMAB
     Dosage: UNK

REACTIONS (2)
  - Myocarditis [Unknown]
  - Eosinophilia [Unknown]

NARRATIVE: CASE EVENT DATE: 20241001
